FAERS Safety Report 24544503 (Version 3)
Quarter: 2025Q1

REPORT INFORMATION
  Report Type: Spontaneous
  Country: GR (occurrence: GR)
  Receive Date: 20241024
  Receipt Date: 20250303
  Transmission Date: 20250409
  Serious: No
  Sender: PFIZER
  Company Number: GR-PFIZER INC-PV202400136166

PATIENT
  Age: 7 Year
  Sex: Male
  Weight: 18 kg

DRUGS (4)
  1. GENOTROPIN [Suspect]
     Active Substance: SOMATROPIN
     Indication: Hypopituitarism
     Dosage: 0.5MG X 7 DAYS
     Route: 058
     Dates: start: 202309
  2. LEVOTHYROXINE [Concomitant]
     Active Substance: LEVOTHYROXINE
  3. LEVOTHYROXINE [Concomitant]
     Active Substance: LEVOTHYROXINE
  4. HYDROCORTISONE [Concomitant]
     Active Substance: HYDROCORTISONE
     Dosage: UNK, DAILY

REACTIONS (2)
  - Device leakage [Unknown]
  - Poor quality device used [Unknown]
